FAERS Safety Report 6419892-X (Version None)
Quarter: 2009Q4

REPORT INFORMATION
  Report Type: 
  Country: None (occurrence: None)
  Receive Date: 20091029
  Receipt Date: 20091024
  Transmission Date: 20100525
  Serious: No
  Sender: FDA-Public Use
  Company Number: US-B.I. PHARMACEUTICALS,INC./RIDGEFIELD-2009-BP-12522BP

PATIENT
  Sex: Female

DRUGS (2)
  1. ZANTAC 150 [Suspect]
     Indication: ABDOMINAL DISCOMFORT
     Dosage: 150 MG
     Route: 048
     Dates: start: 20091024
  2. TOPROL-XL [Concomitant]
     Indication: HEART RATE IRREGULAR
     Dates: start: 20070101

REACTIONS (1)
  - GASTRIC DISORDER [None]
